FAERS Safety Report 5124403-5 (Version None)
Quarter: 2006Q4

REPORT INFORMATION
  Report Type: 
  Country: None (occurrence: None)
  Receive Date: 20061010
  Receipt Date: 20020812
  Transmission Date: 20070319
  Serious: Yes (Life-Threatening, Hospitalization, Other)
  Sender: FDA-Public Use
  Company Number: JP-MERCK-0208USA02378

PATIENT
  Age: 51 Year
  Sex: Female
  Weight: 50 kg

DRUGS (7)
  1. SINGULAIR [Suspect]
     Indication: ASTHMA
     Route: 048
     Dates: start: 20020405, end: 20020710
  2. THEO-DUR [Concomitant]
     Route: 048
     Dates: start: 20020322, end: 20020611
  3. KAKKON-TO-KA-SENKYU-SINI [Concomitant]
     Route: 048
     Dates: start: 20020405
  4. DASEN [Concomitant]
     Route: 048
     Dates: start: 20020405, end: 20020516
  5. FLOMOX [Concomitant]
     Route: 048
     Dates: start: 20020405, end: 20020409
  6. FLOMOX [Concomitant]
     Route: 048
     Dates: start: 20020610, end: 20020614
  7. CLARITHROMYCIN [Concomitant]
     Route: 048
     Dates: start: 20020615, end: 20020619

REACTIONS (4)
  - ALLERGIC GRANULOMATOUS ANGIITIS [None]
  - BACK PAIN [None]
  - DEPRESSION [None]
  - DIARRHOEA [None]
